FAERS Safety Report 7621846-2 (Version None)
Quarter: 2011Q3

REPORT INFORMATION
  Report Type: 
  Country: None (occurrence: None)
  Receive Date: 20110720
  Receipt Date: 20110711
  Transmission Date: 20111222
  Serious: No
  Sender: FDA-Public Use
  Company Number: US-BIOGENIDEC-2010BI034502

PATIENT
  Sex: Female

DRUGS (1)
  1. TYSABRI [Suspect]
     Indication: MULTIPLE SCLEROSIS
     Route: 042
     Dates: start: 20080318

REACTIONS (8)
  - MUSCLE SPASMS [None]
  - SOMNOLENCE [None]
  - MUSCULAR WEAKNESS [None]
  - ARTHRALGIA [None]
  - KNEE DEFORMITY [None]
  - MULTIPLE SCLEROSIS RELAPSE [None]
  - BALANCE DISORDER [None]
  - ARTHROPATHY [None]
